FAERS Safety Report 21742412 (Version 1)
Quarter: 2022Q4

REPORT INFORMATION
  Report Type: Spontaneous
  Country: ES (occurrence: ES)
  Receive Date: 20221216
  Receipt Date: 20221216
  Transmission Date: 20230113
  Serious: Yes (Other)
  Sender: FDA-Public Use
  Company Number: ES-GW PHARMA-2022-ES-037665

PATIENT

DRUGS (1)
  1. CANNABIDIOL [Suspect]
     Active Substance: CANNABIDIOL
     Indication: Lennox-Gastaut syndrome
     Dosage: 150 MILLIGRAM PER 12 HOURS

REACTIONS (1)
  - Urinary retention [Unknown]
